FAERS Safety Report 14349782 (Version 1)
Quarter: 2018Q1

REPORT INFORMATION
  Report Type: Spontaneous
  Country: US (occurrence: US)
  Receive Date: 20180103
  Receipt Date: 20180103
  Transmission Date: 20180509
  Serious: Yes (Hospitalization)
  Sender: FDA-Public Use
  Company Number: None

PATIENT
  Sex: Female

DRUGS (6)
  1. NORVASC [Concomitant]
     Active Substance: AMLODIPINE BESYLATE
  2. ENBREL [Suspect]
     Active Substance: ETANERCEPT
     Indication: PSORIATIC ARTHROPATHY
     Dosage: ?          OTHER FREQUENCY:ONCE WEEKLY;?
     Route: 058
  3. LYRICA [Concomitant]
     Active Substance: PREGABALIN
  4. MORPHINE [Concomitant]
     Active Substance: MORPHINE
  5. XI GDUO [Concomitant]
  6. TIMOLOL. [Concomitant]
     Active Substance: TIMOLOL

REACTIONS (2)
  - Chest pain [None]
  - Drug dose omission [None]
